FAERS Safety Report 19392934 (Version 14)
Quarter: 2023Q2

REPORT INFORMATION
  Report Type: Spontaneous
  Country: DE (occurrence: DE)
  Receive Date: 20210609
  Receipt Date: 20230411
  Transmission Date: 20230722
  Serious: Yes (Life-Threatening, Other)
  Sender: FDA-Public Use
  Company Number: DE-002147023-NVSC2021DE027017

PATIENT
  Age: 50 Year
  Sex: Female
  Weight: 78 kg

DRUGS (6)
  1. LETROZOLE [Suspect]
     Active Substance: LETROZOLE
     Indication: Breast cancer metastatic
     Dosage: 2.5 MILLIGRAM, ONCE A DAY(2.5 MG, QD)
     Route: 048
     Dates: start: 20201103
  2. LETROZOLE [Suspect]
     Active Substance: LETROZOLE
     Dosage: 2.5 MILLIGRAM, ONCE A DAY
     Route: 048
     Dates: start: 20201104, end: 20210211
  3. KISQALI [Suspect]
     Active Substance: RIBOCICLIB
     Indication: Breast cancer metastatic
     Dosage: 600 MILLIGRAM, ONCE A DAY (21 DAYS INTAKE, THAN 7 DAYS WITHOUT THERAPY)
     Route: 048
     Dates: start: 20201103
  4. KISQALI [Suspect]
     Active Substance: RIBOCICLIB
     Dosage: 600 MILLIGRAM, ONCE A DAY (21 DAYS INTAKE, THAN 7 DAYS WITHOUT THERAPY)
     Route: 048
     Dates: start: 20201104, end: 20210211
  5. PALBOCICLIB [Suspect]
     Active Substance: PALBOCICLIB
     Indication: Breast cancer
     Dosage: 125 MILLIGRAM, UNK ()125 MG (3/1 REGIMEN (WEEKS))
     Route: 048
     Dates: start: 20210422
  6. PALBOCICLIB [Suspect]
     Active Substance: PALBOCICLIB
     Dosage: 125 MILLIGRAM (3/1 REGIMEN (WEEKS))
     Route: 065
     Dates: start: 20210422, end: 20210909

REACTIONS (11)
  - Alanine aminotransferase increased [Unknown]
  - Hepatobiliary disease [Not Recovered/Not Resolved]
  - Steatohepatitis [Not Recovered/Not Resolved]
  - Neutropenia [Recovered/Resolved]
  - Aspartate aminotransferase increased [Unknown]
  - Fatigue [Recovered/Resolved]
  - Leukopenia [Recovered/Resolved]
  - Oedema peripheral [Recovered/Resolved]
  - Sleep disorder [Recovered/Resolved]
  - Hot flush [Recovered/Resolved]
  - Affect lability [Recovered/Resolved]

NARRATIVE: CASE EVENT DATE: 20201201
